FAERS Safety Report 11832414 (Version 2)
Quarter: 2017Q4

REPORT INFORMATION
  Report Type: Spontaneous
  Country: US (occurrence: US)
  Receive Date: 20151214
  Receipt Date: 20171221
  Transmission Date: 20180320
  Serious: No
  Sender: FDA-Public Use
  Company Number: US-PFIZER INC-2015404616

PATIENT
  Sex: Female

DRUGS (11)
  1. NICKEL [Suspect]
     Active Substance: NICKEL
     Dosage: UNK
  2. ORUDIS [Suspect]
     Active Substance: KETOPROFEN
     Dosage: UNK
  3. SELDANE [Suspect]
     Active Substance: TERFENADINE
     Dosage: UNK
  4. ZITHROMAX [Suspect]
     Active Substance: AZITHROMYCIN DIHYDRATE
     Dosage: UNK
  5. INDOCIN [Suspect]
     Active Substance: INDOMETHACIN
     Dosage: UNK
  6. TRAZODONE [Suspect]
     Active Substance: TRAZODONE HYDROCHLORIDE
     Dosage: UNK
  7. VOLTAREN [Suspect]
     Active Substance: DICLOFENAC SODIUM
     Dosage: UNK
  8. LODINE [Suspect]
     Active Substance: ETODOLAC
     Dosage: UNK
  9. PROZAC [Suspect]
     Active Substance: FLUOXETINE HYDROCHLORIDE
     Dosage: UNK
  10. PREMARIN [Suspect]
     Active Substance: ESTROGENS, CONJUGATED
     Dosage: UNK
  11. LINDANE. [Suspect]
     Active Substance: LINDANE
     Dosage: UNK

REACTIONS (2)
  - Rash [Unknown]
  - Drug hypersensitivity [Unknown]
